FAERS Safety Report 9526016 (Version 1)
Quarter: 2013Q3

REPORT INFORMATION
  Report Type: Spontaneous
  Country: IE (occurrence: IE)
  Receive Date: 20130916
  Receipt Date: 20130916
  Transmission Date: 20140515
  Serious: Yes (Life-Threatening)
  Sender: FDA-Public Use
  Company Number: IE-ROXANE LABORATORIES, INC.-2013-RO-01511RO

PATIENT
  Age: 64 Year
  Sex: Male

DRUGS (1)
  1. METHOTREXATE [Suspect]
     Indication: PSORIASIS

REACTIONS (3)
  - Necrotising fasciitis streptococcal [Recovered/Resolved]
  - Fall [Unknown]
  - Limb injury [Unknown]
